FAERS Safety Report 25599303 (Version 1)
Quarter: 2025Q3

REPORT INFORMATION
  Report Type: Spontaneous
  Country: US (occurrence: US)
  Receive Date: 20250724
  Receipt Date: 20250724
  Transmission Date: 20251020
  Serious: Yes (Other)
  Sender: BAXTER
  Company Number: US-MLMSERVICE-20250711-PI575449-00175-1

PATIENT
  Age: 44 Year
  Sex: Male

DRUGS (2)
  1. HEPARIN SODIUM [Suspect]
     Active Substance: HEPARIN SODIUM
     Indication: Pulmonary embolism
     Route: 065
  2. HEPARIN SODIUM [Suspect]
     Active Substance: HEPARIN SODIUM
     Indication: Anticoagulant therapy

REACTIONS (9)
  - Hepatic haematoma [Recovering/Resolving]
  - Haemoperitoneum [Recovering/Resolving]
  - Splenic haemorrhage [Recovering/Resolving]
  - Hepatic haemorrhage [Recovering/Resolving]
  - Haemodynamic instability [Recovering/Resolving]
  - Traumatic liver injury [Recovering/Resolving]
  - Abdominal distension [Recovering/Resolving]
  - Abdominal pain [Recovering/Resolving]
  - Abdominal tenderness [Recovering/Resolving]
